FAERS Safety Report 15059834 (Version 1)
Quarter: 2018Q2

REPORT INFORMATION
  Report Type: Spontaneous
  Country: US (occurrence: US)
  Receive Date: 20180625
  Receipt Date: 20180625
  Transmission Date: 20180711
  Serious: Yes (Other)
  Sender: FDA-Public Use
  Company Number: US-SA-2018SA162325

PATIENT

DRUGS (2)
  1. TAXOTERE [Suspect]
     Active Substance: DOCETAXEL
     Dosage: UNKNOWN
     Route: 042
     Dates: start: 20140620, end: 20140620
  2. TAXOTERE [Suspect]
     Active Substance: DOCETAXEL
     Dosage: UNKNOWN
     Route: 042
     Dates: start: 20140121, end: 20140121

REACTIONS (1)
  - Alopecia [Unknown]
